FAERS Safety Report 8150797-2 (Version None)
Quarter: 2012Q1

REPORT INFORMATION
  Report Type: 
  Country: None (occurrence: None)
  Receive Date: 20120220
  Receipt Date: 20120214
  Transmission Date: 20120608
  Serious: Yes (Death, Hospitalization, Other)
  Sender: FDA-Public Use
  Company Number: JP-ELI_LILLY_AND_COMPANY-JP201201003310

PATIENT
  Sex: Male
  Weight: 65 kg

DRUGS (3)
  1. GEMZAR [Suspect]
     Dosage: 1600 MG, OTHER/ EVERY OTHER WEEK
     Route: 042
     Dates: start: 20111208, end: 20111222
  2. TS 1 [Concomitant]
     Indication: PANCREATIC CARCINOMA STAGE IV
     Dosage: 50 MG, BID
     Route: 048
     Dates: start: 20111208, end: 20111222
  3. GEMZAR [Suspect]
     Indication: PANCREATIC CARCINOMA STAGE IV
     Dosage: 1600 MG, OTHER/DAY ONE, EIGHT AND 15
     Route: 042
     Dates: start: 20110908, end: 20111124

REACTIONS (4)
  - INTERSTITIAL LUNG DISEASE [None]
  - WHITE BLOOD CELL COUNT DECREASED [None]
  - PRURITUS GENERALISED [None]
  - CEREBRAL INFARCTION [None]
